FAERS Safety Report 8187945-4 (Version None)
Quarter: 2012Q1

REPORT INFORMATION
  Report Type: 
  Country: None (occurrence: None)
  Receive Date: 20120306
  Receipt Date: 20120228
  Transmission Date: 20120608
  Serious: Yes (Disabling, Congenital Anomaly)
  Sender: FDA-Public Use
  Company Number: JP-GLAXOSMITHKLINE-B0782476A

PATIENT
  Sex: Male
  Weight: 3.2 kg

DRUGS (2)
  1. ARIXTRA [Suspect]
     Indication: THROMBOSIS PROPHYLAXIS
     Dosage: 7.5MG PER DAY
     Route: 064
     Dates: start: 20110524, end: 20110603
  2. ARIXTRA [Suspect]
     Dosage: 5MG PER DAY
     Route: 064
     Dates: start: 20110604, end: 20111228

REACTIONS (6)
  - FOETAL EXPOSURE DURING PREGNANCY [None]
  - CONGENITAL CLEFT HAND [None]
  - SYNDACTYLY [None]
  - ADACTYLY [None]
  - MATERNAL DRUGS AFFECTING FOETUS [None]
  - HAEMANGIOMA CONGENITAL [None]
